FAERS Safety Report 6151764-0 (Version None)
Quarter: 2009Q2

REPORT INFORMATION
  Report Type: 
  Country: None (occurrence: None)
  Receive Date: 20090410
  Receipt Date: 20090403
  Transmission Date: 20091009
  Serious: Yes (Hospitalization)
  Sender: FDA-Public Use
  Company Number: B0565890A

PATIENT
  Sex: Male

DRUGS (2)
  1. BACTROBAN [Suspect]
     Indication: STAPHYLOCOCCAL INFECTION
     Route: 045
     Dates: start: 20090311, end: 20090313
  2. TRICLORYL [Concomitant]
     Indication: INVESTIGATION
     Dosage: 2.5ML PER DAY
     Route: 048
     Dates: start: 20090311, end: 20090312

REACTIONS (5)
  - BLISTER [None]
  - GENERALISED ERYTHEMA [None]
  - NEONATAL ASPHYXIA [None]
  - PULMONARY HYPERTENSION [None]
  - SKIN EXFOLIATION [None]
